FAERS Safety Report 25935305 (Version 1)
Quarter: 2025Q4

REPORT INFORMATION
  Report Type: Spontaneous
  Country: US (occurrence: US)
  Receive Date: 20251017
  Receipt Date: 20251017
  Transmission Date: 20260117
  Serious: Yes (Hospitalization)
  Sender: SYMOGEN
  Company Number: US-PARTNER THERAPEUTICS-2025PTX00086

PATIENT
  Age: 50 Year
  Sex: Male

DRUGS (2)
  1. LEUKINE [Suspect]
     Active Substance: SARGRAMOSTIM
     Indication: Immunodeficiency
     Dosage: UNK
     Dates: start: 20250923
  2. LEUKINE [Suspect]
     Active Substance: SARGRAMOSTIM
     Indication: Mucormycosis

REACTIONS (2)
  - Bone debridement [Unknown]
  - Off label use [Unknown]

NARRATIVE: CASE EVENT DATE: 20250923
